FAERS Safety Report 20190178 (Version 1)
Quarter: 2021Q4

REPORT INFORMATION
  Report Type: Spontaneous
  Country: US (occurrence: US)
  Receive Date: 20211215
  Receipt Date: 20211215
  Transmission Date: 20220303
  Serious: No
  Sender: FDA-Public Use
  Company Number: US-BIOMARINAP-US-2021-139905

PATIENT
  Age: 65 Year
  Sex: Male

DRUGS (1)
  1. PALYNZIQ [Suspect]
     Active Substance: PEGVALIASE-PQPZ
     Indication: Product used for unknown indication
     Dosage: ,
     Route: 042

REACTIONS (3)
  - Food allergy [Unknown]
  - Nasopharyngitis [Unknown]
  - Lip swelling [Unknown]

NARRATIVE: CASE EVENT DATE: 20211127
